FAERS Safety Report 4376389-9 (Version None)
Quarter: 2004Q2

REPORT INFORMATION
  Report Type: 
  Country: None (occurrence: None)
  Receive Date: 20040610
  Receipt Date: 20040610
  Transmission Date: 20050107
  Serious: Yes (Other)
  Sender: FDA-Public Use
  Company Number: None

PATIENT
  Age: 27 Year
  Sex: Female
  Weight: 83.4619 kg

DRUGS (7)
  1. PAXIL CR [Suspect]
     Indication: ANXIETY
     Dosage: 37.5 MG DAILY ORAL
     Route: 048
     Dates: start: 20020801, end: 20040601
  2. PAXIL CR [Suspect]
     Indication: PANIC ATTACK
     Dosage: 37.5 MG DAILY ORAL
     Route: 048
     Dates: start: 20020801, end: 20040601
  3. PAXIL CR [Suspect]
     Indication: SOCIAL PHOBIA
     Dosage: 37.5 MG DAILY ORAL
     Route: 048
     Dates: start: 20020801, end: 20040601
  4. ORTHO-NOVUM 7/7/7-21 [Concomitant]
  5. XANAX [Concomitant]
  6. CIPRO [Concomitant]
  7. PAN MIST [Concomitant]

REACTIONS (11)
  - ABASIA [None]
  - BALANCE DISORDER [None]
  - CRYING [None]
  - DRUG WITHDRAWAL SYNDROME [None]
  - DYSSTASIA [None]
  - EAR PAIN [None]
  - IMPAIRED DRIVING ABILITY [None]
  - MOTION SICKNESS [None]
  - NIGHTMARE [None]
  - TEMPOROMANDIBULAR JOINT SYNDROME [None]
  - VISION BLURRED [None]
